FAERS Safety Report 11769517 (Version 5)
Quarter: 2016Q1

REPORT INFORMATION
  Report Type: Spontaneous
  Country: US (occurrence: US)
  Receive Date: 20151123
  Receipt Date: 20160316
  Transmission Date: 20160525
  Serious: Yes (Hospitalization, Disabling, Other)
  Sender: FDA-Public Use
  Company Number: US-009507513-1203USA02910

PATIENT
  Sex: Female

DRUGS (4)
  1. ALENDRONATE SODIUM. [Suspect]
     Active Substance: ALENDRONATE SODIUM
     Indication: OSTEOPENIA
     Dosage: 70 MG, UNKNOWN
     Route: 048
     Dates: start: 20080902
  2. FOSAMAX [Suspect]
     Active Substance: ALENDRONATE SODIUM
     Dosage: 70 MG, UNKNOWN
     Route: 048
     Dates: start: 20040921
  3. FOSAMAX [Suspect]
     Active Substance: ALENDRONATE SODIUM
     Dosage: 10 MG, UNKNOWN
     Route: 048
     Dates: start: 20040110, end: 200409
  4. FOSAMAX [Suspect]
     Active Substance: ALENDRONATE SODIUM
     Indication: OSTEOPENIA
     Dosage: UNK, QD
     Route: 048
     Dates: start: 199809

REACTIONS (24)
  - Anxiety disorder [Unknown]
  - Femur fracture [Unknown]
  - Malaise [Unknown]
  - Patella fracture [Unknown]
  - Blood pressure increased [Unknown]
  - Persistent depressive disorder [Unknown]
  - Periprosthetic fracture [Unknown]
  - Peripheral swelling [Unknown]
  - Osteoporosis [Unknown]
  - Ulna fracture [Unknown]
  - Oedema peripheral [Unknown]
  - Bone disorder [Unknown]
  - Femoral neck fracture [Not Recovered/Not Resolved]
  - Radius fracture [Unknown]
  - Fall [Unknown]
  - Haematoma [Unknown]
  - Pleuritic pain [Unknown]
  - Fall [Unknown]
  - Fall [Unknown]
  - Fatigue [Unknown]
  - Femur fracture [Unknown]
  - Osteonecrosis [Unknown]
  - Vitamin D deficiency [Unknown]
  - Hyperlipidaemia [Unknown]

NARRATIVE: CASE EVENT DATE: 20030909
